FAERS Safety Report 9270334 (Version 1)
Quarter: 2013Q2

REPORT INFORMATION
  Report Type: Spontaneous
  Country: US (occurrence: US)
  Receive Date: 20130503
  Receipt Date: 20130503
  Transmission Date: 20140414
  Serious: Yes (Hospitalization, Other)
  Sender: FDA-Public Use
  Company Number: US-ELI_LILLY_AND_COMPANY-US201304008890

PATIENT
  Sex: Female

DRUGS (3)
  1. HUMALOG LISPRO [Suspect]
     Dosage: UNK
     Route: 058
  2. NOVOLOG [Concomitant]
     Dosage: UNK, UNKNOWN
  3. DIOVAN [Concomitant]
     Indication: BLOOD PRESSURE INCREASED
     Dosage: UNK, UNKNOWN

REACTIONS (7)
  - Blood glucose decreased [Recovered/Resolved]
  - Blindness [Unknown]
  - Abdominal distension [Unknown]
  - Nausea [Unknown]
  - Vomiting [Unknown]
  - Memory impairment [Unknown]
  - Incorrect dose administered [Unknown]
